FAERS Safety Report 8845154 (Version 4)
Quarter: 2012Q4

REPORT INFORMATION
  Report Type: 
  Country: JP (occurrence: JP)
  Receive Date: 20121017
  Receipt Date: 20121231
  Transmission Date: 20130627
  Serious: Yes (Life-Threatening, Hospitalization)
  Sender: FDA-Public Use
  Company Number: JP-B.I. PHARMACEUTICALS,INC./RIDGEFIELD-2012-BP-24999NB

PATIENT
  Age: 83 Year
  Sex: Male
  Weight: 49 kg

DRUGS (11)
  1. PRADAXA [Suspect]
     Indication: ATRIAL FIBRILLATION
     Dosage: 220 mg
     Route: 048
     Dates: start: 20120512, end: 20120925
  2. BAYASPIRIN [Concomitant]
     Indication: ANGINA PECTORIS
     Dosage: 100 mg
     Route: 048
  3. NIFEDIPINE [Concomitant]
     Indication: CEREBRAL INFARCTION
     Dosage: 20 mg
     Route: 048
     Dates: end: 20120925
  4. BENEXATE HYDROCHLORIDE BETADEX [Concomitant]
     Indication: PROPHYLAXIS AGAINST GASTROINTESTINAL ULCER
     Dosage: 400 mg
     Route: 048
     Dates: end: 20120925
  5. PAROXETINE HYDROCHLORIDE HYDRATE [Concomitant]
     Indication: INSOMNIA
     Dosage: 10 mg
     Route: 048
  6. MAGNESIUM OXIDE [Concomitant]
     Indication: CONSTIPATION
     Dosage: 1.5 g
     Route: 048
  7. BISOPROLOL [Concomitant]
     Indication: ATRIAL FIBRILLATION
     Dosage: 2.5 g
     Route: 048
     Dates: start: 20100814
  8. SEPAMIT-R [Concomitant]
     Indication: HYPERTENSION
     Dosage: 20 mg
     Route: 048
     Dates: end: 20120926
  9. MAINTATE [Concomitant]
     Indication: HYPERTENSION
     Dosage: 2.5 mg
     Route: 048
     Dates: start: 201008
  10. PAXIL [Concomitant]
     Indication: INSOMNIA
     Dosage: 10 mg
     Route: 048
  11. TICLOPIDINE HYDROCHLORIDE [Concomitant]
     Dosage: 200 mg
     Route: 048
     Dates: end: 20120511

REACTIONS (1)
  - Interstitial lung disease [Recovered/Resolved]
